FAERS Safety Report 9049284 (Version 3)
Quarter: 2013Q1

REPORT INFORMATION
  Report Type: Spontaneous
  Country: US (occurrence: US)
  Receive Date: 20130205
  Receipt Date: 20130315
  Transmission Date: 20140127
  Serious: Yes (Other)
  Sender: FDA-Public Use
  Company Number: US-ABBOTT-13P-163-1039547-00

PATIENT
  Sex: Male
  Weight: 79 kg

DRUGS (3)
  1. LUPRON DEPOT [Suspect]
     Indication: PROSTATE CANCER
     Dates: start: 2011
  2. GILENYA [Concomitant]
     Indication: MULTIPLE SCLEROSIS
  3. VITAMINS [Concomitant]
     Indication: VITAMIN SUPPLEMENTATION
     Dosage: DAILY

REACTIONS (3)
  - Bone loss [Not Recovered/Not Resolved]
  - Dental caries [Not Recovered/Not Resolved]
  - Asthenia [Not Recovered/Not Resolved]
